FAERS Safety Report 6962631-4 (Version None)
Quarter: 2010Q3

REPORT INFORMATION
  Report Type: 
  Country: None (occurrence: None)
  Receive Date: 20100902
  Receipt Date: 20100823
  Transmission Date: 20110219
  Serious: Yes (Other)
  Sender: FDA-Public Use
  Company Number: US-PFIZER INC-2010106425

PATIENT
  Sex: Female

DRUGS (5)
  1. LIPITOR [Suspect]
     Dosage: UNK
     Route: 065
     Dates: end: 20100721
  2. TOPROL-XL [Suspect]
     Indication: THROMBOSIS
     Dosage: UNK
     Route: 065
     Dates: start: 20100602, end: 20100721
  3. PLAVIX [Suspect]
     Indication: THROMBOSIS
     Dosage: 75 MG, DAILY
     Route: 048
     Dates: start: 20100602, end: 20100719
  4. ACETYLSALICYLIC ACID [Concomitant]
     Dosage: UNK
  5. MULTI-VITAMINS [Concomitant]
     Dosage: UNK
     Dates: end: 20100701

REACTIONS (9)
  - ALANINE AMINOTRANSFERASE INCREASED [None]
  - AORTIC STENOSIS [None]
  - ASPARTATE AMINOTRANSFERASE INCREASED [None]
  - BLOOD ALKALINE PHOSPHATASE INCREASED [None]
  - CONTUSION [None]
  - HEPATIC CIRRHOSIS [None]
  - HEPATIC FIBROSIS [None]
  - HEPATITIS A [None]
  - OFF LABEL USE [None]
